FAERS Safety Report 22219576 (Version 1)
Quarter: 2023Q2

REPORT INFORMATION
  Report Type: Spontaneous
  Country: US (occurrence: US)
  Receive Date: 20230417
  Receipt Date: 20230417
  Transmission Date: 20230721
  Serious: No
  Sender: FDA-Public Use
  Company Number: US-PFIZER INC-PV202300069409

PATIENT
  Age: 23 Year
  Sex: Male

DRUGS (3)
  1. EUCRISA [Suspect]
     Active Substance: CRISABOROLE
     Indication: Dermatitis atopic
     Dosage: UNK
  2. PROTOPIC [Suspect]
     Active Substance: TACROLIMUS
     Dosage: UNK
     Route: 061
  3. ELIDEL [Suspect]
     Active Substance: PIMECROLIMUS
     Dosage: UNK UNK, 2X/DAY
     Route: 061

REACTIONS (1)
  - Treatment failure [Unknown]
